FAERS Safety Report 23577368 (Version 1)
Quarter: 2024Q1

REPORT INFORMATION
  Report Type: Spontaneous
  Country: CO (occurrence: CO)
  Receive Date: 20240228
  Receipt Date: 20240228
  Transmission Date: 20240409
  Serious: Yes (Other)
  Sender: FDA-Public Use
  Company Number: CO-BIOMARINAP-CO-2024-155485

PATIENT

DRUGS (1)
  1. VIMIZIM [Suspect]
     Active Substance: ELOSULFASE ALFA
     Indication: Mucopolysaccharidosis IV
     Dosage: 40 MILLIGRAM, QW
     Route: 042
     Dates: start: 201209

REACTIONS (4)
  - Deafness bilateral [Unknown]
  - Ear infection [Unknown]
  - Ear pain [Unknown]
  - Headache [Unknown]

NARRATIVE: CASE EVENT DATE: 20240125
